FAERS Safety Report 10302788 (Version 4)
Quarter: 2015Q1

REPORT INFORMATION
  Report Type: Spontaneous
  Country: US (occurrence: US)
  Receive Date: 20140714
  Receipt Date: 20150218
  Transmission Date: 20150720
  Serious: Yes (Other)
  Sender: FDA-Public Use
  Company Number: US-GLAXOSMITHKLINE-A1080944A

PATIENT
  Age: 56 Year
  Sex: Female

DRUGS (10)
  1. ADVAIR DISKUS [Suspect]
     Active Substance: FLUTICASONE PROPIONATE\SALMETEROL XINAFOATE
     Dosage: 1 PUFF(S), BID 250/50 UG
  2. ASPIRIN (BABY) [Concomitant]
  3. SALONPAS PAIN RELIEF [Concomitant]
     Active Substance: MENTHOL\METHYL SALICYLATE
  4. ADVAIR DISKUS [Suspect]
     Active Substance: FLUTICASONE PROPIONATE\SALMETEROL XINAFOATE
     Indication: CHRONIC OBSTRUCTIVE PULMONARY DISEASE
     Dosage: UNK 100/50 MCG
     Route: 065
     Dates: start: 20060301
  5. ADVAIR DISKUS [Suspect]
     Active Substance: FLUTICASONE PROPIONATE\SALMETEROL XINAFOATE
     Indication: ASTHMA
     Dosage: UNK 100/50 MCG
     Dates: start: 20060301
  6. VERAPAMIL ER [Concomitant]
     Active Substance: VERAPAMIL HYDROCHLORIDE
  7. PROAIR HFA [Concomitant]
     Active Substance: ALBUTEROL SULFATE
  8. ADVAIR DISKUS [Suspect]
     Active Substance: FLUTICASONE PROPIONATE\SALMETEROL XINAFOATE
     Dosage: UNK 100/50 MCG
  9. ALPRAZOLAM. [Concomitant]
     Active Substance: ALPRAZOLAM
  10. ACETAMINOPHEN. [Concomitant]
     Active Substance: ACETAMINOPHEN

REACTIONS (15)
  - Musculoskeletal discomfort [Unknown]
  - Chronic obstructive pulmonary disease [Unknown]
  - Upper limb fracture [Unknown]
  - Fall [Not Recovered/Not Resolved]
  - Finger deformity [Not Recovered/Not Resolved]
  - Multiple fractures [Unknown]
  - Arthropathy [Unknown]
  - Hand fracture [Unknown]
  - Nerve injury [Not Recovered/Not Resolved]
  - Joint range of motion decreased [Unknown]
  - Clavicle fracture [Not Recovered/Not Resolved]
  - Road traffic accident [Unknown]
  - Amnesia [Unknown]
  - Arthralgia [Not Recovered/Not Resolved]
  - Memory impairment [Not Recovered/Not Resolved]

NARRATIVE: CASE EVENT DATE: 201208
